FAERS Safety Report 24969813 (Version 1)
Quarter: 2025Q1

REPORT INFORMATION
  Report Type: Spontaneous
  Country: JP (occurrence: JP)
  Receive Date: 20250214
  Receipt Date: 20250214
  Transmission Date: 20250408
  Serious: Yes (Other)
  Sender: ROCHE
  Company Number: JP-CHUGAI-2025003803

PATIENT
  Age: 23 Year
  Sex: Male

DRUGS (1)
  1. PIASKY [Suspect]
     Active Substance: CROVALIMAB-AKKZ
     Indication: Paroxysmal nocturnal haemoglobinuria
     Dosage: 640 MILLIGRAM, ONCE/4WEEKS
     Route: 058
     Dates: start: 20241129

REACTIONS (1)
  - Anaemia [Not Recovered/Not Resolved]
